FAERS Safety Report 5328069-0 (Version None)
Quarter: 2007Q2

REPORT INFORMATION
  Report Type: 
  Country: None (occurrence: None)
  Receive Date: 20070514
  Receipt Date: 20070501
  Transmission Date: 20071010
  Serious: Yes (Hospitalization)
  Sender: FDA-Public Use
  Company Number: 2007-155827-NL

PATIENT
  Age: 24 Year
  Sex: Female
  Weight: 56 kg

DRUGS (1)
  1. NUVARING [Suspect]
     Indication: CONTRACEPTION
     Dosage: VAGINAL, 3 WKS IN, 1 WK OUT
     Route: 067
     Dates: start: 20070122, end: 20070401

REACTIONS (6)
  - CYST [None]
  - ENDOMETRIAL DISORDER [None]
  - ENDOMETRIOSIS [None]
  - NAUSEA [None]
  - VOMITING [None]
  - VULVOVAGINAL MYCOTIC INFECTION [None]
